FAERS Safety Report 4654735-6 (Version None)
Quarter: 2005Q2

REPORT INFORMATION
  Report Type: 
  Country: None (occurrence: None)
  Receive Date: 20050506
  Receipt Date: 20050426
  Transmission Date: 20051028
  Serious: Yes (Death, Hospitalization, Other)
  Sender: FDA-Public Use
  Company Number: US-JNJFOC-20050306498

PATIENT
  Sex: Female

DRUGS (2)
  1. REMICADE [Suspect]
     Route: 042
  2. REMICADE [Suspect]
     Indication: RHEUMATOID ARTHRITIS
     Route: 042

REACTIONS (6)
  - BONE PAIN [None]
  - CHOLELITHIASIS [None]
  - COLORECTAL CANCER METASTATIC [None]
  - INFECTION [None]
  - METASTASES TO LIVER [None]
  - PULMONARY MASS [None]
